FAERS Safety Report 8844209 (Version 2)
Quarter: 2012Q4

REPORT INFORMATION
  Report Type: 
  Country: US (occurrence: US)
  Receive Date: 20121016
  Receipt Date: 20121214
  Transmission Date: 20130627
  Serious: Yes (Hospitalization, Disabling, Other)
  Sender: FDA-Public Use
  Company Number: US-GENZYME-CERZ-1002646

PATIENT
  Age: 61 Year
  Sex: Female
  Weight: 69.5 kg

DRUGS (8)
  1. CEREZYME [Suspect]
     Indication: GAUCHER^S DISEASE
     Dosage: 4400 U, q4w
     Route: 042
     Dates: start: 1998, end: 20121023
  2. CEREZYME [Suspect]
     Dosage: 6000 U, UNK
     Route: 042
     Dates: start: 20121023
  3. BENICAR [Concomitant]
     Indication: PRODUCT USED FOR UNKNOWN INDICATION
     Dosage: 40 mg, qd
     Route: 065
  4. LEXAPRO [Concomitant]
     Indication: PRODUCT USED FOR UNKNOWN INDICATION
     Dosage: 10 mg, qd
  5. IBUPROFEN [Concomitant]
     Indication: PRODUCT USED FOR UNKNOWN INDICATION
     Route: 065
  6. ASPIRIN [Concomitant]
     Indication: PRODUCT USED FOR UNKNOWN INDICATION
     Dosage: 81 mg, qd
     Route: 065
  7. XYZAL [Concomitant]
     Indication: PRODUCT USED FOR UNKNOWN INDICATION
     Dosage: 5 mg, qd
     Route: 065
  8. LORTAB [Concomitant]
     Indication: PAIN
     Dosage: UNK
     Route: 065

REACTIONS (12)
  - Adnexa uteri pain [Not Recovered/Not Resolved]
  - Appendicectomy [Unknown]
  - Arthralgia [Not Recovered/Not Resolved]
  - Back pain [Not Recovered/Not Resolved]
  - Abdominal pain [Recovered/Resolved]
  - Hepatomegaly [Unknown]
  - Muscle tightness [Unknown]
  - Abdominal rigidity [Unknown]
  - Abdominal distension [Unknown]
  - Flushing [Not Recovered/Not Resolved]
  - Chest discomfort [Unknown]
  - Fatigue [Unknown]
